FAERS Safety Report 5331159-X (Version None)
Quarter: 2007Q2

REPORT INFORMATION
  Report Type: 
  Country: None (occurrence: None)
  Receive Date: 20070522
  Receipt Date: 20070515
  Transmission Date: 20071010
  Serious: Yes (Other)
  Sender: FDA-Public Use
  Company Number: BR-ASTRAZENECA-2007UW11123

PATIENT
  Age: 34 Year
  Sex: Female
  Weight: 51 kg

DRUGS (2)
  1. ZOLADEX [Suspect]
     Indication: RHABDOMYOMA
     Route: 058
     Dates: start: 20061101, end: 20070205
  2. TERBENACINA [Concomitant]
     Indication: MYCOSIS FUNGOIDES
     Route: 048
     Dates: start: 20070201

REACTIONS (2)
  - HOT FLUSH [None]
  - UTERINE LEIOMYOMA [None]
